FAERS Safety Report 24033087 (Version 2)
Quarter: 2024Q3

REPORT INFORMATION
  Report Type: Report from Study
  Country: DE (occurrence: DE)
  Receive Date: 20240701
  Receipt Date: 20240707
  Transmission Date: 20241017
  Serious: Yes (Death)
  Sender: ROCHE
  Company Number: DE-ROCHE-10000007126

PATIENT

DRUGS (2)
  1. TECENTRIQ [Suspect]
     Active Substance: ATEZOLIZUMAB
     Indication: Hepatocellular carcinoma
     Route: 065
  2. AVASTIN [Suspect]
     Active Substance: BEVACIZUMAB
     Indication: Hepatocellular carcinoma
     Route: 065

REACTIONS (5)
  - Neutrophil count increased [Fatal]
  - Bleeding varicose vein [Fatal]
  - White blood cell count increased [Fatal]
  - Hepatic function abnormal [Fatal]
  - Inflammatory marker increased [Fatal]
